FAERS Safety Report 5273640-8 (Version None)
Quarter: 2007Q1

REPORT INFORMATION
  Report Type: 
  Country: None (occurrence: None)
  Receive Date: 20070323
  Receipt Date: 20060803
  Transmission Date: 20070707
  Serious: No
  Sender: FDA-Public Use
  Company Number: US-GLAXOSMITHKLINE-A0615073A

PATIENT
  Age: 73 Year
  Sex: Male

DRUGS (1)
  1. LEUKERAN [Suspect]
     Indication: DRUG USE FOR UNKNOWN INDICATION
     Dosage: 2MG PER DAY
     Route: 048

REACTIONS (3)
  - DRUG ADMINISTRATION ERROR [None]
  - PARAESTHESIA [None]
  - POLLAKIURIA [None]
